FAERS Safety Report 13542322 (Version 1)
Quarter: 2017Q2

REPORT INFORMATION
  Report Type: Spontaneous
  Country: US (occurrence: US)
  Receive Date: 20170512
  Receipt Date: 20170512
  Transmission Date: 20170830
  Serious: Yes (Other)
  Sender: FDA-Public Use
  Company Number: US-ROCHE-770049

PATIENT
  Age: 57 Year
  Sex: Female

DRUGS (1)
  1. AVASTIN [Suspect]
     Active Substance: BEVACIZUMAB
     Indication: CHORIORETINOPATHY
     Dosage: 2 INJECTIONS, INDICATION REPORTED AS AMD (CENTRAL SEROUS RETINOPATHY).
     Route: 050

REACTIONS (9)
  - Dry eye [Unknown]
  - Visual impairment [Unknown]
  - Nausea [Unknown]
  - Drug ineffective [Unknown]
  - Vision blurred [Unknown]
  - Neovascular age-related macular degeneration [Unknown]
  - Vomiting [Unknown]
  - Ocular hyperaemia [Unknown]
  - Foreign body sensation in eyes [Unknown]
